FAERS Safety Report 5263146-4 (Version None)
Quarter: 2007Q1

REPORT INFORMATION
  Report Type: 
  Country: None (occurrence: None)
  Receive Date: 20070312
  Receipt Date: 20070301
  Transmission Date: 20070707
  Serious: Yes (Other)
  Sender: FDA-Public Use
  Company Number: US-PFIZER INC-2007016310

PATIENT
  Sex: Female
  Weight: 49 kg

DRUGS (2)
  1. CELEBREX [Suspect]
     Indication: ARTHROPATHY
     Dates: start: 20070201, end: 20070201
  2. IBANDRONATE SODIUM [Concomitant]

REACTIONS (4)
  - ERYTHEMA [None]
  - HYPERSENSITIVITY [None]
  - THROAT TIGHTNESS [None]
  - URTICARIA [None]
